FAERS Safety Report 8033207-5 (Version None)
Quarter: 2012Q1

REPORT INFORMATION
  Report Type: 
  Country: None (occurrence: None)
  Receive Date: 20120110
  Receipt Date: 20120109
  Transmission Date: 20120608
  Serious: Yes (Hospitalization, Other)
  Sender: FDA-Public Use
  Company Number: US-AMGEN-USASP2011062796

PATIENT
  Age: 70 Year
  Sex: Female

DRUGS (1)
  1. ENBREL [Suspect]
     Indication: RHEUMATOID ARTHRITIS
     Dosage: 50 MG, QWK
     Dates: start: 20020601

REACTIONS (8)
  - PULMONARY ALVEOLAR HAEMORRHAGE [None]
  - PNEUMONIA [None]
  - TRAUMATIC LUNG INJURY [None]
  - MUSCULOSKELETAL PAIN [None]
  - FALL [None]
  - RADIUS FRACTURE [None]
  - RIB FRACTURE [None]
  - RHEUMATOID ARTHRITIS [None]
